FAERS Safety Report 14144235 (Version 4)
Quarter: 2018Q1

REPORT INFORMATION
  Report Type: Report from Study
  Country: US (occurrence: US)
  Receive Date: 20171031
  Receipt Date: 20180327
  Transmission Date: 20180508
  Serious: Yes (Hospitalization, Other)
  Sender: FDA-Public Use
  Company Number: US-AMGEN-USASL2017163028

PATIENT
  Age: 74 Year
  Sex: Female

DRUGS (2)
  1. ENBREL [Suspect]
     Active Substance: ETANERCEPT
     Dosage: 50 MG, QWK
     Route: 065
     Dates: start: 20171026
  2. ENBREL [Suspect]
     Active Substance: ETANERCEPT
     Indication: RHEUMATOID ARTHRITIS
     Dosage: 25 MG, 3 TIMES/WK
     Route: 065

REACTIONS (9)
  - Pulmonary embolism [Unknown]
  - Diabetes mellitus [Unknown]
  - Gastric infection [Unknown]
  - Injection site pain [Unknown]
  - Unevaluable event [Unknown]
  - Loss of personal independence in daily activities [Unknown]
  - Rheumatoid arthritis [Not Recovered/Not Resolved]
  - Off label use [Unknown]
  - Thrombosis [Unknown]

NARRATIVE: CASE EVENT DATE: 201710
